FAERS Safety Report 25138779 (Version 2)
Quarter: 2025Q2

REPORT INFORMATION
  Report Type: Spontaneous
  Country: PT (occurrence: PT)
  Receive Date: 20250331
  Receipt Date: 20250521
  Transmission Date: 20250717
  Serious: No
  Sender: ORGANON
  Company Number: PT-ORGANON-O2503PRT002782

PATIENT
  Sex: Female

DRUGS (1)
  1. ETONOGESTREL [Suspect]
     Active Substance: ETONOGESTREL
     Indication: Contraception
     Route: 059
     Dates: start: 20241031

REACTIONS (4)
  - Amenorrhoea [Not Recovered/Not Resolved]
  - False negative pregnancy test [Unknown]
  - Maternal exposure during pregnancy [Unknown]
  - Inappropriate schedule of product administration [Unknown]

NARRATIVE: CASE EVENT DATE: 20241001
